FAERS Safety Report 21599772 (Version 1)
Quarter: 2022Q4

REPORT INFORMATION
  Report Type: Spontaneous
  Country: US (occurrence: US)
  Receive Date: 20221115
  Receipt Date: 20221115
  Transmission Date: 20230113
  Serious: No
  Sender: FDA-Public Use
  Company Number: US-BEH-2022151834

PATIENT
  Sex: Female

DRUGS (1)
  1. PRIVIGEN [Suspect]
     Active Substance: HUMAN IMMUNOGLOBULIN G
     Dosage: 30 GRAM, QOW
     Route: 065

REACTIONS (3)
  - False positive investigation result [Unknown]
  - Gastrointestinal disorder [Recovered/Resolved]
  - Anti-transglutaminase antibody increased [Unknown]
